FAERS Safety Report 7664531-3 (Version None)
Quarter: 2011Q3

REPORT INFORMATION
  Report Type: 
  Country: None (occurrence: None)
  Receive Date: 20110806
  Receipt Date: 20110217
  Transmission Date: 20111222
  Serious: No
  Sender: FDA-Public Use
  Company Number: US-ABBOTT-11P-163-0707121-00

PATIENT
  Sex: Female
  Weight: 58.112 kg

DRUGS (2)
  1. ASPIRIN [Concomitant]
     Indication: CARDIOVASCULAR EVENT PROPHYLAXIS
  2. NIASPAN [Suspect]
     Indication: BLOOD CHOLESTEROL INCREASED
     Dates: start: 20110216, end: 20110216

REACTIONS (2)
  - FEELING HOT [None]
  - EYE SWELLING [None]
